FAERS Safety Report 19732730 (Version 1)
Quarter: 2021Q3

REPORT INFORMATION
  Report Type: Spontaneous
  Country: US (occurrence: US)
  Receive Date: 20210821
  Receipt Date: 20210821
  Transmission Date: 20211014
  Serious: Yes (Disabling)
  Sender: FDA-Public Use
  Company Number: None

PATIENT
  Age: 52 Year
  Sex: Female
  Weight: 54.9 kg

DRUGS (1)
  1. OCREVUS [Suspect]
     Active Substance: OCRELIZUMAB
     Indication: MULTIPLE SCLEROSIS
     Dates: start: 20170814, end: 20210420

REACTIONS (5)
  - Balance disorder [None]
  - Headache [None]
  - Coordination abnormal [None]
  - Fatigue [None]
  - Immunosuppression [None]

NARRATIVE: CASE EVENT DATE: 20210501
